FAERS Safety Report 5027610-5 (Version None)
Quarter: 2006Q2

REPORT INFORMATION
  Report Type: 
  Country: None (occurrence: None)
  Receive Date: 20060616
  Receipt Date: 20060609
  Transmission Date: 20061013
  Serious: Yes (Hospitalization)
  Sender: FDA-Public Use
  Company Number: US-JNJFOC-20060602966

PATIENT
  Sex: Female
  Weight: 127.01 kg

DRUGS (12)
  1. FENTANYL TRANSDERMAL SYSTEM [Suspect]
     Indication: PAIN
     Route: 062
  2. VICODIN ES [Concomitant]
     Route: 048
  3. VICODIN ES [Concomitant]
     Indication: PAIN
     Dosage: 7.5 MG HYDROCODONE, 325 MG ACETAMINOPHEN TABLET, 4 TABLETS IN 24 HOURS, ORAL
     Route: 048
  4. NEXIUM [Concomitant]
     Indication: GASTROOESOPHAGEAL REFLUX DISEASE
     Route: 048
  5. ATENOLOL [Concomitant]
     Indication: HYPERTENSION
     Route: 048
  6. HYDROCHLOROTHIAZIDE [Concomitant]
     Indication: FLUID RETENTION
     Route: 048
  7. DYRENIUM [Concomitant]
     Indication: FLUID RETENTION
     Route: 048
  8. AVANDIA [Concomitant]
     Indication: DIABETES MELLITUS
     Route: 048
  9. GLUCOTROL [Concomitant]
     Indication: DIABETES MELLITUS
     Route: 048
  10. PLAQUENIL [Concomitant]
     Indication: MUSCLE SPASMS
     Route: 048
  11. PROZAC [Concomitant]
     Indication: DEPRESSION
     Route: 048
  12. TRICOR [Concomitant]
     Indication: BLOOD CHOLESTEROL INCREASED
     Route: 048

REACTIONS (4)
  - BLOOD DISORDER [None]
  - FALL [None]
  - THERAPEUTIC RESPONSE DECREASED [None]
  - WRONG TECHNIQUE IN DRUG USAGE PROCESS [None]
